FAERS Safety Report 10388842 (Version 1)
Quarter: 2014Q1

REPORT INFORMATION
  Report Type: Spontaneous
  Country: US (occurrence: None)
  Receive Date: 20140306
  Receipt Date: 20140306
  Transmission Date: 20141002
  Serious: Yes (Other)
  Sender: FDA-Public Use
  Company Number: 163-21880-13100107

PATIENT
  Age: 70 Year
  Sex: Male

DRUGS (9)
  1. REVLIMID (LENALIDOMIDE) (5 MILLIGRAM, CAPSULES) [Suspect]
     Indication: PLASMA CELL MYELOMA
     Dosage: 5 MG, 21 IN 28 D, PO
     Route: 048
     Dates: start: 20120926
  2. LOVENOX (HEPARIN-FRACTION, SODIUM SALT) [Concomitant]
  3. COUMADIN (WARFARIN SOIDUM) [Concomitant]
  4. ASA (ACETYLSALICYLIC ACID) [Concomitant]
  5. ZOMETA (ZOLEDRONIC ACID) [Concomitant]
  6. CLONIDINE [Concomitant]
  7. DILTIAZEM [Concomitant]
  8. KCL (POTASSIUM CHLORIDE) [Concomitant]
  9. SIMVASTATIN [Concomitant]

REACTIONS (2)
  - Deep vein thrombosis [None]
  - Cellulitis [None]
